FAERS Safety Report 22186471 (Version 1)
Quarter: 2023Q2

REPORT INFORMATION
  Report Type: Spontaneous
  Country: US (occurrence: US)
  Receive Date: 20230407
  Receipt Date: 20230407
  Transmission Date: 20230722
  Serious: No
  Sender: FDA-Public Use
  Company Number: US-PERRIGO-23US003383

PATIENT
  Age: 82 Year
  Sex: Male
  Weight: 56.689 kg

DRUGS (1)
  1. FAMOTIDINE [Suspect]
     Active Substance: FAMOTIDINE
     Indication: Gastrooesophageal reflux disease
     Dosage: 10 MG, BID
     Route: 048
     Dates: start: 20230309, end: 20230313

REACTIONS (1)
  - Drug effect less than expected [Unknown]

NARRATIVE: CASE EVENT DATE: 20230309
